FAERS Safety Report 10378650 (Version 2)
Quarter: 2014Q4

REPORT INFORMATION
  Report Type: Spontaneous
  Country: US (occurrence: US)
  Receive Date: 20140812
  Receipt Date: 20141121
  Transmission Date: 20150528
  Serious: Yes (Hospitalization, Other)
  Sender: FDA-Public Use
  Company Number: US-BAYER-2014-118415

PATIENT
  Age: 26 Year
  Sex: Female
  Weight: 85 kg

DRUGS (1)
  1. MIRENA [Suspect]
     Active Substance: LEVONORGESTREL
     Indication: CONTRACEPTION
     Dosage: 20 MCG/24HR, IRR
     Route: 015
     Dates: start: 20111209, end: 20120727

REACTIONS (15)
  - Uterine perforation [None]
  - Device failure [None]
  - Post procedural infection [None]
  - Abdominal pain lower [None]
  - Lactation disorder [None]
  - Emotional distress [None]
  - Pain [None]
  - Self esteem decreased [None]
  - Sexual dysfunction [None]
  - Depression [None]
  - Scar [None]
  - Activities of daily living impaired [None]
  - Injury [None]
  - Procedural pain [None]
  - Anxiety [None]

NARRATIVE: CASE EVENT DATE: 2012
